FAERS Safety Report 6539793-6 (Version None)
Quarter: 2010Q1

REPORT INFORMATION
  Report Type: 
  Country: None (occurrence: None)
  Receive Date: 20100115
  Receipt Date: 20100108
  Transmission Date: 20100710
  Serious: Yes (Life-Threatening, Hospitalization, Other)
  Sender: FDA-Public Use
  Company Number: TR-PFIZER INC-2010003515

PATIENT
  Age: 65 Year
  Sex: Female

DRUGS (6)
  1. LIPITOR [Suspect]
     Dosage: 20 MG, 1X/DAY
     Route: 048
     Dates: start: 20091222, end: 20091227
  2. AMARYL [Concomitant]
     Dosage: 4 MG, 1X/DAY
  3. NORVASC [Concomitant]
     Dosage: 5 MG, 1X/DAY
  4. BETASERC [Concomitant]
     Dosage: 8 MG, 1X/DAY
  5. TENSINOR [Concomitant]
     Dosage: 50 MG, 1X/DAY
  6. METFORMIN HYDROCHLORIDE [Concomitant]
     Dosage: 850 MG, UNK

REACTIONS (8)
  - ABDOMINAL PAIN UPPER [None]
  - ALANINE AMINOTRANSFERASE INCREASED [None]
  - ASPARTATE AMINOTRANSFERASE INCREASED [None]
  - BLOOD ALKALINE PHOSPHATASE INCREASED [None]
  - BLOOD GLUCOSE INCREASED [None]
  - CARBOHYDRATE ANTIGEN 19-9 INCREASED [None]
  - NAUSEA [None]
  - VOMITING [None]
